FAERS Safety Report 4924690-X (Version None)
Quarter: 2006Q1

REPORT INFORMATION
  Report Type: 
  Country: None (occurrence: None)
  Receive Date: 20060222
  Receipt Date: 20060213
  Transmission Date: 20060701
  Serious: Yes (Other)
  Sender: FDA-Public Use
  Company Number: 2006-02-0752

PATIENT
  Age: 38 Year
  Sex: Female

DRUGS (9)
  1. DESLORATADINE (SCH 34117) TABLETS [Suspect]
     Indication: PRURITUS
     Dosage: 10 MG QD ORAL
     Route: 048
     Dates: start: 20030101, end: 20030101
  2. FLUCONAZOLE [Suspect]
     Indication: PYREXIA
     Dosage: 400 MG IV INTRAVENOUS
     Route: 042
     Dates: start: 20030115, end: 20030116
  3. CLEMASTINE [Concomitant]
  4. ALLOPURINOL [Concomitant]
  5. RANITIDINE [Concomitant]
  6. LORAZEPAM [Concomitant]
  7. LEVOFLOXACIN [Concomitant]
  8. SPIRONOLACTONE [Concomitant]
  9. FILGRASTIM [Concomitant]

REACTIONS (4)
  - APLASIA [None]
  - HEPATOTOXICITY [None]
  - INTERNATIONAL NORMALISED RATIO ABNORMAL [None]
  - PYREXIA [None]
